FAERS Safety Report 9968108 (Version 1)
Quarter: 2014Q1

REPORT INFORMATION
  Report Type: Report from Study
  Country: US (occurrence: US)
  Receive Date: 20140306
  Receipt Date: 20140306
  Transmission Date: 20141002
  Serious: No
  Sender: FDA-Public Use
  Company Number: US-ABBVIE-13P-163-1145607-00

PATIENT
  Age: 48 Year
  Sex: Female

DRUGS (4)
  1. HUMIRA [Suspect]
     Indication: CROHN^S DISEASE
     Dosage: MONDAY
     Route: 058
     Dates: start: 20130729
  2. PROZAC [Concomitant]
     Indication: DEPRESSION
     Dosage: 40 MG DAILY
     Route: 048
  3. ASPIRIN [Concomitant]
     Indication: COAGULOPATHY
     Dosage: 81 MG DAILY
     Route: 048
  4. UNKNOWN COMBINATION OF HERBAL SUPPLEMNTS AND MULTI-VITAMINS [Concomitant]
     Indication: PRODUCT USED FOR UNKNOWN INDICATION
     Dosage: DAILY
     Route: 048

REACTIONS (2)
  - Injection site discomfort [Recovered/Resolved]
  - Injection site pain [Recovered/Resolved]
